FAERS Safety Report 13357488 (Version 2)
Quarter: 2017Q2

REPORT INFORMATION
  Report Type: Spontaneous
  Country: JP (occurrence: JP)
  Receive Date: 20170322
  Receipt Date: 20170428
  Transmission Date: 20170830
  Serious: Yes (Life-Threatening, Other)
  Sender: FDA-Public Use
  Company Number: JP-ROCHE-1871118

PATIENT
  Age: 61 Year
  Sex: Male
  Weight: 53 kg

DRUGS (6)
  1. FUROSEMIDE. [Concomitant]
     Active Substance: FUROSEMIDE
     Indication: PROPHYLAXIS
     Route: 042
     Dates: start: 20161124, end: 20161124
  2. HERCEPTIN [Suspect]
     Active Substance: TRASTUZUMAB
     Indication: GASTROOESOPHAGEAL CANCER
     Route: 041
     Dates: start: 20161124, end: 20161124
  3. GRANISETRON [Concomitant]
     Active Substance: GRANISETRON
     Indication: PROPHYLAXIS
     Route: 042
     Dates: start: 20161124, end: 20161124
  4. XELODA [Suspect]
     Active Substance: CAPECITABINE
     Indication: GASTROOESOPHAGEAL CANCER
     Dosage: 2 WEEKS ADMINISTRATION FOLLOWED BY 1 WEEK REST
     Route: 048
     Dates: start: 20161124, end: 20161207
  5. CISPLATIN. [Suspect]
     Active Substance: CISPLATIN
     Indication: GASTROOESOPHAGEAL CANCER
     Route: 041
     Dates: start: 20161124, end: 20161124
  6. DEXART [Concomitant]
     Active Substance: DEXAMETHASONE SODIUM PHOSPHATE
     Indication: PROPHYLAXIS
     Route: 042
     Dates: start: 20161124, end: 20161124

REACTIONS (5)
  - Platelet count decreased [Recovered/Resolved]
  - Off label use [Unknown]
  - Tracheal obstruction [Recovering/Resolving]
  - Febrile neutropenia [Recovered/Resolved]
  - Enterocolitis haemorrhagic [Not Recovered/Not Resolved]

NARRATIVE: CASE EVENT DATE: 20161209
